FAERS Safety Report 13304924 (Version 2)
Quarter: 2017Q1

REPORT INFORMATION
  Report Type: Spontaneous
  Country: CN (occurrence: CN)
  Receive Date: 20170308
  Receipt Date: 20170328
  Transmission Date: 20170428
  Serious: Yes (Other)
  Sender: FDA-Public Use
  Company Number: CN-SUN PHARMACEUTICAL INDUSTRIES LTD-2017RR-135387

PATIENT
  Sex: Male

DRUGS (1)
  1. QUINIDINE [Suspect]
     Active Substance: QUINIDINE
     Indication: PACEMAKER GENERATED ARRHYTHMIA
     Dosage: 200 MG, DAILY
     Route: 065

REACTIONS (1)
  - Leukopenia [Unknown]
